FAERS Safety Report 21096195 (Version 1)
Quarter: 2022Q3

REPORT INFORMATION
  Report Type: Spontaneous
  Country: JP (occurrence: JP)
  Receive Date: 20220718
  Receipt Date: 20220718
  Transmission Date: 20221026
  Serious: Yes (Hospitalization)
  Sender: FDA-Public Use
  Company Number: A202200485-001

PATIENT
  Age: 70 Year
  Sex: Female

DRUGS (8)
  1. BENDAMUSTINE HYDROCHLORIDE [Suspect]
     Active Substance: BENDAMUSTINE HYDROCHLORIDE
     Indication: Follicular lymphoma
     Dosage: 90 MG/M2, CYCLE 1 GB THERAPY
     Route: 042
  2. BENDAMUSTINE HYDROCHLORIDE [Suspect]
     Active Substance: BENDAMUSTINE HYDROCHLORIDE
     Dosage: 90 MG/M2, CYCLE 2 GB THERAPY
     Route: 042
  3. BENDAMUSTINE HYDROCHLORIDE [Suspect]
     Active Substance: BENDAMUSTINE HYDROCHLORIDE
     Dosage: 90 MG/M2, CYCLE 3 GB THERAPY
     Route: 042
  4. BENDAMUSTINE HYDROCHLORIDE [Suspect]
     Active Substance: BENDAMUSTINE HYDROCHLORIDE
     Dosage: 90 MG/M2, CYCLE 4 GB THERAPY
     Route: 042
     Dates: start: 202202
  5. GAZYVA [Concomitant]
     Active Substance: OBINUTUZUMAB
     Indication: Follicular lymphoma
     Dosage: 1000 MG, CYCLE 1 GB THERAPY
     Route: 042
  6. GAZYVA [Concomitant]
     Active Substance: OBINUTUZUMAB
     Dosage: 1000 MG, CYCLE 2 GB THERAPY
     Route: 042
  7. GAZYVA [Concomitant]
     Active Substance: OBINUTUZUMAB
     Dosage: 1000 MG, CYCLE 3 GB THERAPY
     Route: 042
  8. GAZYVA [Concomitant]
     Active Substance: OBINUTUZUMAB
     Dosage: 1000 MG, CYCLE 4 GB THERAPY
     Route: 042
     Dates: start: 202202

REACTIONS (1)
  - COVID-19 [Not Recovered/Not Resolved]

NARRATIVE: CASE EVENT DATE: 20220101
